FAERS Safety Report 5752426-1 (Version None)
Quarter: 2008Q2

REPORT INFORMATION
  Report Type: 
  Country: None (occurrence: None)
  Receive Date: 20080529
  Receipt Date: 20080526
  Transmission Date: 20081010
  Serious: Yes (Other)
  Sender: FDA-Public Use
  Company Number: B0519527A

PATIENT
  Age: 84 Year
  Sex: Female

DRUGS (2)
  1. ARIXTRA [Suspect]
     Dosage: 5MG PER DAY
     Route: 065
     Dates: start: 20080312, end: 20080421
  2. ONCO-CARBIDE [Concomitant]
     Route: 065
     Dates: end: 20080421

REACTIONS (4)
  - DEEP VEIN THROMBOSIS [None]
  - LEUKOPENIA [None]
  - THROMBOCYTOPENIA [None]
  - WHITE BLOOD CELL COUNT DECREASED [None]
